FAERS Safety Report 23398344 (Version 2)
Quarter: 2024Q2

REPORT INFORMATION
  Report Type: Report from Study
  Country: US (occurrence: US)
  Receive Date: 20240112
  Receipt Date: 20240614
  Transmission Date: 20240716
  Serious: Yes (Other)
  Sender: FDA-Public Use
  Company Number: US-BRISTOL-MYERS SQUIBB COMPANY-2024-006640

PATIENT
  Age: 69 Year
  Sex: Female
  Weight: 59.87 kg

DRUGS (5)
  1. ORENCIA [Suspect]
     Active Substance: ABATACEPT
     Indication: Rheumatoid arthritis
     Route: 058
  2. TYMLOS [Concomitant]
     Active Substance: ABALOPARATIDE
     Indication: Osteoporosis
  3. HYDROXYCHLOROQUINE [Concomitant]
     Active Substance: HYDROXYCHLOROQUINE
     Indication: Product used for unknown indication
  4. VITAMINS NOS [Concomitant]
     Active Substance: VITAMINS
     Indication: Product used for unknown indication
  5. DICLOFENAC [Concomitant]
     Active Substance: DICLOFENAC
     Indication: Pain

REACTIONS (9)
  - Rheumatoid arthritis [Unknown]
  - Product dose omission issue [Unknown]
  - Joint swelling [Unknown]
  - Arthralgia [Unknown]
  - Therapeutic response decreased [Unknown]
  - Immunodeficiency [Unknown]
  - Respiratory tract infection [Unknown]
  - COVID-19 [Unknown]
  - Product supply issue [Unknown]

NARRATIVE: CASE EVENT DATE: 20240301
